FAERS Safety Report 6918469-7 (Version None)
Quarter: 2010Q3

REPORT INFORMATION
  Report Type: 
  Country: None (occurrence: None)
  Receive Date: 20100811
  Receipt Date: 20100727
  Transmission Date: 20110219
  Serious: Yes (Life-Threatening, Hospitalization, Other)
  Sender: FDA-Public Use
  Company Number: DE-RANBAXY-2010RR-31156

PATIENT
  Age: 77 Year
  Sex: Male
  Weight: 68 kg

DRUGS (10)
  1. CEFUROX BASICS 250 MG TABLETTEN [Suspect]
     Indication: FEBRILE NEUTROPENIA
     Dosage: 250 MG, BID
     Route: 048
     Dates: start: 20090602, end: 20090630
  2. THIAMAZOL, 5MG, TABL, HEXAL BZW. METHAZIOL SD 5 MG, TABL, MIBE [Suspect]
     Indication: HYPERTHYROIDISM
     Dosage: UNK
     Route: 048
     Dates: start: 20090306, end: 20090708
  3. SIMVASTATIN CORAX, 40 MG, FILMTABL. [Concomitant]
     Dosage: UNK
     Route: 048
     Dates: start: 20070701, end: 20090922
  4. OMEPRAZOL AL BZW. ANTRA MUPS, 20 MG, ALIUD BZW. ASTRA ZENECA [Concomitant]
     Dosage: 20 MG, QD
     Route: 048
     Dates: start: 20090313, end: 20090922
  5. MANINIL, 5MG, TABL, BERLIN-CHEMIE [Concomitant]
     Indication: INSULIN-REQUIRING TYPE 2 DIABETES MELLITUS
     Dosage: 2.5-15 MG PER DAY
     Route: 048
     Dates: start: 20070701, end: 20090922
  6. ASS-RATIOPHARM BZW.1A-PHARMA, 300 BZW. 100 MG, TABL. [Concomitant]
     Dosage: 100-300 MG PER DAY
     Route: 048
     Dates: start: 20070725, end: 20091118
  7. TORASEMID BZW. TOREM, 10 MG, TABL, HEXAL BZW BERLIN-CHEMIE [Concomitant]
     Dosage: 5-10 MG PER DAY
     Route: 048
     Dates: start: 20070701
  8. DELIX, SANOFI-AVENTIS BZW. RAMIPRIL BETA, BETAPHARM 5 OR 10 MG, TABL. [Concomitant]
     Dosage: UNK
     Route: 048
     Dates: start: 20070701
  9. ACTRAPHANE 30, FERTIGPEN, NOVO NORDISK [Concomitant]
     Indication: INSULIN-REQUIRING TYPE 2 DIABETES MELLITUS
     Dosage: UNK
     Route: 058
     Dates: start: 20090302
  10. METHIZOL SD MIBE [Concomitant]
     Dosage: 5 MG, UNK
     Route: 048

REACTIONS (1)
  - AGRANULOCYTOSIS [None]
